FAERS Safety Report 13505902 (Version 1)
Quarter: 2017Q2

REPORT INFORMATION
  Report Type: Spontaneous
  Country: US (occurrence: US)
  Receive Date: 20170502
  Receipt Date: 20170502
  Transmission Date: 20170830
  Serious: No
  Sender: FDA-Public Use
  Company Number: US-ROCHE-1366083

PATIENT
  Age: 57 Year
  Sex: Female

DRUGS (16)
  1. AVASTIN [Suspect]
     Active Substance: BEVACIZUMAB
     Route: 065
     Dates: end: 201203
  2. LISINOPRIL. [Concomitant]
     Active Substance: LISINOPRIL
     Route: 065
  3. TEMAZEPAM. [Concomitant]
     Active Substance: TEMAZEPAM
     Route: 065
  4. AVASTIN [Suspect]
     Active Substance: BEVACIZUMAB
     Indication: FALLOPIAN TUBE CANCER METASTATIC
     Route: 065
     Dates: start: 201008, end: 201010
  5. TAXOL [Concomitant]
     Active Substance: PACLITAXEL
     Dosage: 3 WEEK ON, 1 WEEK OFF X 4 CYCLES
     Route: 065
     Dates: start: 201308
  6. CYTOXAN [Concomitant]
     Active Substance: CYCLOPHOSPHAMIDE
     Route: 065
     Dates: end: 201203
  7. HERBALS [Concomitant]
     Active Substance: HERBALS
  8. TAXOL [Concomitant]
     Active Substance: PACLITAXEL
     Indication: FALLOPIAN TUBE CANCER METASTATIC
     Route: 065
     Dates: start: 201008, end: 201010
  9. MIRTAZAPINE. [Concomitant]
     Active Substance: MIRTAZAPINE
     Route: 065
  10. TAMOXIFEN [Concomitant]
     Active Substance: TAMOXIFEN
     Indication: FALLOPIAN TUBE CANCER METASTATIC
     Route: 065
  11. TURMERIC [Concomitant]
     Active Substance: HERBALS\TURMERIC
  12. CISPLATIN. [Concomitant]
     Active Substance: CISPLATIN
     Indication: FALLOPIAN TUBE CANCER METASTATIC
  13. FEMARA [Concomitant]
     Active Substance: LETROZOLE
     Route: 065
  14. DOXIL [Concomitant]
     Active Substance: DOXORUBICIN HYDROCHLORIDE
     Indication: FALLOPIAN TUBE CANCER METASTATIC
     Route: 065
     Dates: start: 201301
  15. MELATONIN [Concomitant]
     Active Substance: MELATONIN
  16. CARBOPLATIN. [Concomitant]
     Active Substance: CARBOPLATIN

REACTIONS (14)
  - Depression [Unknown]
  - Retroperitoneal lymphadenopathy [Unknown]
  - Drug hypersensitivity [Unknown]
  - Retroperitoneal lymphadenopathy [Unknown]
  - Fatigue [Unknown]
  - Insomnia [Unknown]
  - Skin reaction [Unknown]
  - Myalgia [Unknown]
  - Anxiety [Unknown]
  - Asthenia [Unknown]
  - Quality of life decreased [Unknown]
  - Carbohydrate antigen 125 increased [Unknown]
  - Musculoskeletal pain [Unknown]
  - Abdominal hernia [Unknown]

NARRATIVE: CASE EVENT DATE: 20140104
